FAERS Safety Report 15777190 (Version 2)
Quarter: 2019Q1

REPORT INFORMATION
  Report Type: Spontaneous
  Country: US (occurrence: US)
  Receive Date: 20181231
  Receipt Date: 20190104
  Transmission Date: 20190417
  Serious: No
  Sender: FDA-Public Use
  Company Number: US-PFIZER INC-2018533876

PATIENT
  Age: 62 Year
  Sex: Male

DRUGS (1)
  1. NICOTROL [Suspect]
     Active Substance: NICOTINE
     Indication: SMOKING CESSATION THERAPY
     Dosage: UNK (4 MG DELIVERED)
     Route: 055

REACTIONS (4)
  - Gastrointestinal disorder [Unknown]
  - Overdose [Unknown]
  - Poor quality product administered [Unknown]
  - Product quality issue [Unknown]
